FAERS Safety Report 21504720 (Version 1)
Quarter: 2022Q4

REPORT INFORMATION
  Report Type: Spontaneous
  Country: CN (occurrence: CN)
  Receive Date: 20221025
  Receipt Date: 20221025
  Transmission Date: 20230112
  Serious: Yes (Death, Other)
  Sender: FDA-Public Use
  Company Number: CN-OTSUKA-2022_049480

PATIENT
  Age: 7 Year
  Sex: Male

DRUGS (7)
  1. BUSULFAN [Suspect]
     Active Substance: BUSULFAN
     Indication: Leukodystrophy
     Dosage: 0.8-1 MG/KG; EVERY 6 H FOR 4 DAYS (TOTAL DOSE: 12.8-16)
     Route: 042
  2. BUSULFAN [Suspect]
     Active Substance: BUSULFAN
     Indication: Bone marrow conditioning regimen
  3. FLUDARABINE [Suspect]
     Active Substance: FLUDARABINE PHOSPHATE
     Indication: Leukodystrophy
     Dosage: 30 MG/M2, QD; FOR 5 DAYS (TOTAL DOSE: 150 MG/M2)
     Route: 042
  4. FLUDARABINE [Suspect]
     Active Substance: FLUDARABINE PHOSPHATE
     Indication: Bone marrow conditioning regimen
  5. CYCLOPHOSPHAMIDE [Suspect]
     Active Substance: CYCLOPHOSPHAMIDE
     Indication: Leukodystrophy
     Dosage: 50 MG/KG, QD; FOR 2 DAYS (TOTAL DOSE: 100 MG/KG)
     Route: 042
  6. CYCLOPHOSPHAMIDE [Suspect]
     Active Substance: CYCLOPHOSPHAMIDE
     Indication: Bone marrow conditioning regimen
  7. TACROLIMUS [Concomitant]
     Active Substance: TACROLIMUS
     Indication: Graft versus host disease
     Dosage: UNK
     Route: 048

REACTIONS (5)
  - Gastrointestinal haemorrhage [Unknown]
  - Septic shock [Fatal]
  - Pneumonia [Fatal]
  - Product use in unapproved indication [Unknown]
  - Product use issue [Unknown]
